FAERS Safety Report 10464488 (Version 1)
Quarter: 2014Q3

REPORT INFORMATION
  Report Type: Spontaneous
  Country: FR (occurrence: None)
  Receive Date: 20140917
  Receipt Date: 20140917
  Transmission Date: 20150326
  Serious: Yes (Other)
  Sender: FDA-Public Use
  Company Number: 2530360

PATIENT
  Sex: Female

DRUGS (3)
  1. OXALIPLATIN. [Suspect]
     Active Substance: OXALIPLATIN
     Indication: MESOTHELIOMA
     Dosage: INTRAPERITONEAL
  2. LEUCOVORIN [Concomitant]
     Active Substance: LEUCOVORIN
  3. 5-FLUOROURACIL /00098801/ [Suspect]
     Active Substance: FLUOROURACIL
     Indication: MESOTHELIOMA
     Route: 041

REACTIONS (2)
  - Potentiating drug interaction [None]
  - Bone marrow failure [None]
